FAERS Safety Report 6298252-9 (Version None)
Quarter: 2009Q3

REPORT INFORMATION
  Report Type: 
  Country: None (occurrence: None)
  Receive Date: 20090805
  Receipt Date: 20090723
  Transmission Date: 20100115
  Serious: Yes (Hospitalization)
  Sender: FDA-Public Use
  Company Number: US-MYLANLABS-2009S1010829

PATIENT
  Age: 56 Year
  Sex: Male
  Weight: 56.2 kg

DRUGS (21)
  1. WARFARIN SODIUM [Suspect]
     Indication: HEART VALVE REPLACEMENT
     Dates: end: 20070301
  2. WARFARIN SODIUM [Interacting]
     Dates: start: 20070301, end: 20070306
  3. WARFARIN SODIUM [Interacting]
     Dates: start: 20070308, end: 20070310
  4. WARFARIN SODIUM [Interacting]
     Dates: start: 20070311, end: 20070311
  5. WARFARIN SODIUM [Interacting]
     Dates: start: 20070312, end: 20070321
  6. WARFARIN SODIUM [Interacting]
     Dates: start: 20070322, end: 20070327
  7. WARFARIN SODIUM [Interacting]
     Dates: start: 20070328, end: 20070328
  8. WARFARIN SODIUM [Interacting]
     Dates: start: 20070331, end: 20070406
  9. WARFARIN SODIUM [Interacting]
     Dates: start: 20070407
  10. MARIJUANA [Interacting]
     Indication: DEPRESSION
     Route: 055
  11. MARIJUANA [Interacting]
     Route: 055
  12. FUROSEMIDE [Concomitant]
  13. METOPROLOL TARTRATE [Concomitant]
  14. POTASSIUM CHLORIDE [Concomitant]
  15. TRAMADOL HCL [Concomitant]
     Indication: PAIN
     Dosage: AS NEEDED
  16. CARBAMAZEPINE [Concomitant]
  17. VALPROIC ACID [Concomitant]
  18. SERTRALINE [Concomitant]
  19. OMEPRAZOLE [Concomitant]
  20. CLOPIDOGREL [Concomitant]
  21. ASPIRIN [Concomitant]

REACTIONS (3)
  - DRUG INTERACTION [None]
  - GASTROINTESTINAL HAEMORRHAGE [None]
  - INTERNATIONAL NORMALISED RATIO INCREASED [None]
